FAERS Safety Report 10078964 (Version 1)
Quarter: 2014Q2

REPORT INFORMATION
  Report Type: Spontaneous
  Country: US (occurrence: US)
  Receive Date: 20140415
  Receipt Date: 20140415
  Transmission Date: 20141212
  Serious: No
  Sender: FDA-Public Use
  Company Number: US-BAYER-2014-054470

PATIENT
  Age: 53 Year
  Sex: Male

DRUGS (1)
  1. GADAVIST [Suspect]
     Indication: NUCLEAR MAGNETIC RESONANCE IMAGING
     Dosage: 7 ML, ONCE
     Route: 042
     Dates: start: 20140410, end: 20140410

REACTIONS (1)
  - Urticaria [Recovered/Resolved]
